FAERS Safety Report 4287394-5 (Version None)
Quarter: 2004Q1

REPORT INFORMATION
  Report Type: 
  Country: None (occurrence: None)
  Receive Date: 20040209
  Receipt Date: 20030619
  Transmission Date: 20041129
  Serious: No
  Sender: FDA-Public Use
  Company Number: US-GLAXOSMITHKLINE-A0413149A

PATIENT
  Age: 50 Year
  Sex: Male

DRUGS (2)
  1. PAXIL CR [Suspect]
     Indication: ANXIETY
     Dosage: 25MG PER DAY
     Route: 048
     Dates: start: 20030101, end: 20030605
  2. EFFEXOR [Concomitant]
     Dates: start: 20030606

REACTIONS (1)
  - ERECTILE DYSFUNCTION [None]
